FAERS Safety Report 18568193 (Version 2)
Quarter: 2021Q1

REPORT INFORMATION
  Report Type: Report from Study
  Country: US (occurrence: US)
  Receive Date: 20201202
  Receipt Date: 20210105
  Transmission Date: 20210419
  Serious: Yes (Other)
  Sender: FDA-Public Use
  Company Number: US-BIOVITRUM-2020US4962

PATIENT
  Age: 3 Year
  Sex: Female

DRUGS (7)
  1. MIRALAX [Concomitant]
     Active Substance: POLYETHYLENE GLYCOL 3350
  2. MELATONIN [Concomitant]
     Active Substance: MELATONIN
  3. KINERET [Suspect]
     Active Substance: ANAKINRA
     Indication: CRYOPYRIN ASSOCIATED PERIODIC SYNDROME
     Route: 058
     Dates: start: 20200909
  4. KINERET [Suspect]
     Active Substance: ANAKINRA
     Route: 058
     Dates: start: 20200913
  5. KINERET [Suspect]
     Active Substance: ANAKINRA
     Route: 058
     Dates: start: 20200908
  6. VITAMINS [Concomitant]
     Active Substance: VITAMINS
  7. MOTRIN [Concomitant]
     Active Substance: IBUPROFEN

REACTIONS (13)
  - Cryopyrin associated periodic syndrome [Unknown]
  - COVID-19 [Unknown]
  - Abdominal discomfort [Unknown]
  - Acne [Unknown]
  - Erythema [Unknown]
  - Malaise [Unknown]
  - Restlessness [Unknown]
  - Off label use [Unknown]
  - Abdominal pain upper [Unknown]
  - Insomnia [Unknown]
  - Condition aggravated [Unknown]
  - Constipation [Unknown]
  - Injection site reaction [Unknown]

NARRATIVE: CASE EVENT DATE: 20200909
